FAERS Safety Report 10238647 (Version 1)
Quarter: 2014Q2

REPORT INFORMATION
  Report Type: Spontaneous
  Country: US (occurrence: US)
  Receive Date: 20140616
  Receipt Date: 20140616
  Transmission Date: 20141212
  Serious: No
  Sender: FDA-Public Use
  Company Number: US-BAYER-2014-086463

PATIENT
  Age: 58 Year
  Sex: Female
  Weight: 109 kg

DRUGS (9)
  1. ALEVE CAPLET [Suspect]
     Indication: ANALGESIC THERAPY
     Dosage: 2 DF, BID
     Route: 048
     Dates: start: 201405
  2. BAYER GENUINE ASPIRIN ORIGINAL STRENGTH [Suspect]
     Dosage: UNK DF, UNK
  3. DOXYCIN [Concomitant]
  4. BAYER ASPIRIN REGIMEN ADULT LOW STRENGTH [Concomitant]
  5. VITAMIN E [Concomitant]
  6. VITAMIN D [Concomitant]
  7. ATENOLOL [Concomitant]
  8. METFORMIN [Concomitant]
  9. SETRILAN [Concomitant]

REACTIONS (3)
  - Incorrect drug administration duration [None]
  - Dyspepsia [Recovered/Resolved]
  - Dyspepsia [Unknown]
